FAERS Safety Report 8563890-7 (Version None)
Quarter: 2012Q3

REPORT INFORMATION
  Report Type: 
  Country: None (occurrence: None)
  Receive Date: 20120803
  Receipt Date: 20120726
  Transmission Date: 20120928
  Serious: Yes (Other)
  Sender: FDA-Public Use
  Company Number: US-BAYER-2012-073912

PATIENT
  Sex: Female

DRUGS (1)
  1. MIRENA [Suspect]
     Dosage: 20 MCG/24HR, CONT
     Dates: start: 20120711

REACTIONS (12)
  - COMPLICATION OF DEVICE INSERTION [None]
  - UTERINE CERVIX STENOSIS [None]
  - FEELING ABNORMAL [None]
  - PELVIC PAIN [None]
  - BACK PAIN [None]
  - ABDOMINAL PAIN UPPER [None]
  - PAIN [None]
  - ANAEMIA [None]
  - DISCOMFORT [None]
  - ABDOMINAL DISTENSION [None]
  - INJURY [None]
  - POST PROCEDURAL HAEMORRHAGE [None]
